FAERS Safety Report 4892122-6 (Version None)
Quarter: 2006Q1

REPORT INFORMATION
  Report Type: 
  Country: None (occurrence: None)
  Receive Date: 20060123
  Receipt Date: 20060106
  Transmission Date: 20060701
  Serious: Yes (Hospitalization)
  Sender: FDA-Public Use
  Company Number: DSA-27345-2005

PATIENT
  Age: 48 Year
  Sex: Male

DRUGS (6)
  1. TEMESTA [Suspect]
     Indication: AFFECTIVE DISORDER
     Dosage: 4 MG Q DAY, PO
     Route: 048
     Dates: start: 20050507, end: 20050509
  2. TEGRETOL [Suspect]
     Indication: AFFECTIVE DISORDER
     Dosage: 1000 MG ONCE, PO
     Route: 048
     Dates: start: 20050509, end: 20050510
  3. TEGRETOL [Suspect]
     Indication: AFFECTIVE DISORDER
     Dosage: 900 MG ONCE, PO
     Route: 048
     Dates: start: 20050511
  4. TEGRETOL [Suspect]
     Indication: AFFECTIVE DISORDER
     Dosage: 800 MG ONCE, PO
     Route: 048
     Dates: start: 20050508, end: 20050508
  5. TEGRETOL [Suspect]
     Indication: AFFECTIVE DISORDER
     Dosage: 400 MG ONCE PO
     Route: 048
     Dates: start: 20050507, end: 20050507
  6. ZYPREXA [Suspect]
     Dosage: 15 MG ONCE, PO
     Route: 048
     Dates: start: 20050507

REACTIONS (6)
  - CONFUSIONAL STATE [None]
  - COORDINATION ABNORMAL [None]
  - DRUG INTERACTION [None]
  - DYSARTHRIA [None]
  - GAIT DISTURBANCE [None]
  - INAPPROPRIATE SCHEDULE OF DRUG ADMINISTRATION [None]
